FAERS Safety Report 13391041 (Version 1)
Quarter: 2017Q1

REPORT INFORMATION
  Report Type: Spontaneous
  Country: AU (occurrence: AU)
  Receive Date: 20170331
  Receipt Date: 20170331
  Transmission Date: 20170429
  Serious: Yes (Other)
  Sender: FDA-Public Use
  Company Number: AU-GLAXOSMITHKLINE-AU2017GSK045293

PATIENT
  Sex: Male

DRUGS (4)
  1. VOLTAREN [Suspect]
     Active Substance: DICLOFENAC SODIUM
  2. GILENYA [Suspect]
     Active Substance: FINGOLIMOD HYDROCHLORIDE
  3. ENALAPRIL MALEATE. [Suspect]
     Active Substance: ENALAPRIL MALEATE
  4. NAPROXEN. [Suspect]
     Active Substance: NAPROXEN

REACTIONS (9)
  - Renal impairment [Unknown]
  - Blood glucose increased [Unknown]
  - Gout [Unknown]
  - Osteoarthritis [Unknown]
  - Upper gastrointestinal haemorrhage [Unknown]
  - Neuralgia [Unknown]
  - Urine output increased [Unknown]
  - Gastric ulcer [Unknown]
  - Pyrexia [Unknown]
